FAERS Safety Report 4313908-2 (Version None)
Quarter: 2004Q1

REPORT INFORMATION
  Report Type: 
  Country: None (occurrence: None)
  Receive Date: 20040305
  Receipt Date: 20040223
  Transmission Date: 20041129
  Serious: Yes (Death)
  Sender: FDA-Public Use
  Company Number: 2004-BP-01255NB

PATIENT
  Age: 60 Year
  Sex: Male

DRUGS (2)
  1. MICARDIS [Suspect]
     Indication: HYPERTENSION
     Dosage: 40 MG
     Route: 048
  2. BUFFERIN (TA) [Concomitant]

REACTIONS (1)
  - MYOCARDIAL INFARCTION [None]
